FAERS Safety Report 9846811 (Version 2)
Quarter: 2014Q1

REPORT INFORMATION
  Report Type: Spontaneous
  Country: IE (occurrence: IE)
  Receive Date: 20140127
  Receipt Date: 20140228
  Transmission Date: 20141002
  Serious: Yes (Death, Hospitalization)
  Sender: FDA-Public Use
  Company Number: IE-B.I. PHARMACEUTICALS,INC./RIDGEFIELD-2014-BI-03454UK

PATIENT
  Age: 83 Year
  Sex: Female

DRUGS (12)
  1. PRADAXA [Suspect]
     Indication: ATRIAL FIBRILLATION
     Dosage: 220 MG
     Route: 048
     Dates: start: 201206, end: 20140102
  2. AFINITOR [Suspect]
     Indication: BREAST CANCER
     Route: 048
     Dates: start: 20130612, end: 20140102
  3. ESCITALOPRAM [Suspect]
     Indication: DEPRESSION
     Dosage: 10 MG
     Route: 065
     Dates: start: 201206, end: 20140102
  4. LORAZEPAM [Concomitant]
     Indication: ANXIETY
     Route: 065
  5. LANSOPRAZOLE [Concomitant]
     Dosage: 30 MG
     Route: 065
  6. PERINDOPRIL [Concomitant]
     Indication: BLOOD PRESSURE
     Route: 065
  7. ATORVASTATIN [Concomitant]
     Indication: BLOOD CHOLESTEROL
     Dosage: 10 MG
     Route: 065
  8. LERCANIDIPINE [Concomitant]
     Indication: BLOOD PRESSURE
     Dosage: 10 MG
     Route: 065
  9. ZOLPIDEM [Concomitant]
     Indication: INSOMNIA
     Dosage: 5 MG
     Route: 065
  10. OXYCONTIN [Concomitant]
     Indication: PAIN
     Dosage: 20 MG
     Route: 065
  11. AROMASIN [Concomitant]
     Indication: BREAST CANCER
     Dosage: 25 MG
     Route: 065
     Dates: start: 20130619, end: 20140103
  12. ZOLEDRONIC ACID [Concomitant]
     Indication: METASTASES TO BONE
     Dosage: 0.0329 MG
     Route: 065

REACTIONS (8)
  - Gastrointestinal haemorrhage [Fatal]
  - Gastritis haemorrhagic [Fatal]
  - Renal failure acute [Fatal]
  - Blood creatinine increased [Fatal]
  - Vomiting [Unknown]
  - Diarrhoea [Unknown]
  - Hypotension [Unknown]
  - Anaemia [Unknown]
